FAERS Safety Report 7738873-7 (Version None)
Quarter: 2011Q3

REPORT INFORMATION
  Report Type: 
  Country: None (occurrence: None)
  Receive Date: 20110909
  Receipt Date: 20110831
  Transmission Date: 20111222
  Serious: Yes (Hospitalization)
  Sender: FDA-Public Use
  Company Number: US-BIOGENIDEC-172900

PATIENT
  Age: 46 Year
  Sex: Female
  Weight: 83 kg

DRUGS (9)
  1. AVONEX [Suspect]
     Indication: MULTIPLE SCLEROSIS
     Route: 030
     Dates: start: 20030405, end: 20030801
  2. ESTROGENIC SUBSTANCE [Concomitant]
     Indication: CONTRACEPTION
  3. SKELAXIN [Concomitant]
     Indication: MUSCLE SPASMS
     Route: 048
  4. AVONEX [Suspect]
     Route: 030
     Dates: start: 20060401
  5. MOBIC [Concomitant]
     Indication: OSTEOARTHRITIS
  6. AVONEX [Suspect]
     Route: 030
     Dates: start: 20030801
  7. ASCORBIC ACID [Concomitant]
     Indication: ROUTINE HEALTH MAINTENANCE
  8. MOTRIN [Concomitant]
     Indication: ARTHRALGIA
  9. MECLIZINE [Concomitant]
     Indication: VERTIGO

REACTIONS (10)
  - BONE DEFORMITY [None]
  - KNEE OPERATION [None]
  - HYPERTROPHIC SCAR [None]
  - HAEMATOCRIT DECREASED [None]
  - HYPOAESTHESIA [None]
  - DEVICE DISLOCATION [None]
  - FEMUR FRACTURE [None]
  - CLOSTRIDIAL INFECTION [None]
  - TENDON DISORDER [None]
  - LIMB DEFORMITY [None]
